FAERS Safety Report 5736867-4 (Version None)
Quarter: 2008Q2

REPORT INFORMATION
  Report Type: 
  Country: None (occurrence: None)
  Receive Date: 20080508
  Receipt Date: 20080422
  Transmission Date: 20081010
  Serious: Yes (Hospitalization)
  Sender: FDA-Public Use
  Company Number: CLOF-1000162

PATIENT
  Age: 7 Year
  Sex: Male
  Weight: 20 kg

DRUGS (4)
  1. CLOFARABINE           (CLOFARABINE) [Suspect]
     Indication: ACUTE LEUKAEMIA
     Dosage: 40 MG, QDX5, INTRAVENOUS
     Route: 042
     Dates: start: 20080222, end: 20080226
  2. CYTARABINE [Concomitant]
  3. CASPOFUNGIN   (CASPOFUNGIN ACETATE) [Concomitant]
  4. DOBUTAMINE HCL [Concomitant]

REACTIONS (4)
  - CARDIAC FAILURE [None]
  - FLUID RETENTION [None]
  - HYPOTENSION [None]
  - RASH GENERALISED [None]
